FAERS Safety Report 8287270-7 (Version None)
Quarter: 2012Q2

REPORT INFORMATION
  Report Type: 
  Country: None (occurrence: None)
  Receive Date: 20120416
  Receipt Date: 20120416
  Transmission Date: 20120825
  Serious: Yes (Hospitalization, Disabling)
  Sender: FDA-Public Use
  Company Number: None

PATIENT
  Age: 24 Year
  Sex: Female
  Weight: 55.338 kg

DRUGS (2)
  1. METOCLOPRAMIDE [Suspect]
     Indication: DYSPEPSIA
     Dosage: 1 TABLET
     Route: 048
     Dates: start: 20120410, end: 20120411
  2. METOCLOPRAMIDE [Suspect]
     Indication: BOWEL MOVEMENT IRREGULARITY
     Dosage: 1 TABLET
     Route: 048
     Dates: start: 20120410, end: 20120411

REACTIONS (5)
  - PAIN [None]
  - APHASIA [None]
  - MUSCLE SPASMS [None]
  - TRISMUS [None]
  - APHAGIA [None]
